FAERS Safety Report 25471340 (Version 3)
Quarter: 2025Q3

REPORT INFORMATION
  Report Type: Report from Study
  Country: CA (occurrence: CA)
  Receive Date: 20250624
  Receipt Date: 20250730
  Transmission Date: 20251020
  Serious: Yes (Hospitalization, Other)
  Sender: ABBVIE
  Company Number: CA-ABBVIE-6333692

PATIENT
  Age: 56 Year
  Sex: Male

DRUGS (7)
  1. SKYRIZI [Suspect]
     Active Substance: RISANKIZUMAB-RZAA
     Indication: Crohn^s disease
     Dosage: WEEK 12 AND EVERY 8 WEEKS THEREAFTER
     Route: 058
     Dates: start: 20231014
  2. SKYRIZI [Suspect]
     Active Substance: RISANKIZUMAB-RZAA
     Dosage: SKYRIZI OBI FORM STRENGTH: 360MG/2.4ML
     Route: 058
  3. METFORMIN [Concomitant]
     Active Substance: METFORMIN HYDROCHLORIDE
     Indication: Product used for unknown indication
  4. GLICLAZIDE [Concomitant]
     Active Substance: GLICLAZIDE
     Indication: Product used for unknown indication
  5. BISOPROLOL [Concomitant]
     Active Substance: BISOPROLOL
     Indication: Product used for unknown indication
  6. VENTOLIN [Concomitant]
     Active Substance: ALBUTEROL SULFATE
     Indication: Product used for unknown indication
  7. SYMBICORT [Concomitant]
     Active Substance: BUDESONIDE\FORMOTEROL FUMARATE DIHYDRATE
     Indication: Product used for unknown indication

REACTIONS (3)
  - Intestinal obstruction [Unknown]
  - Rash pruritic [Not Recovered/Not Resolved]
  - Crohn^s disease [Recovering/Resolving]

NARRATIVE: CASE EVENT DATE: 20250101
